FAERS Safety Report 8801677 (Version 1)
Quarter: 2012Q4

REPORT INFORMATION
  Report Type: 
  Country: FR (occurrence: FR)
  Receive Date: 20120921
  Receipt Date: 20120921
  Transmission Date: 20130627
  Serious: Yes (Hospitalization)
  Sender: FDA-Public Use
  Company Number: FR-ELI_LILLY_AND_COMPANY-FR201209002658

PATIENT
  Age: 69 Year
  Sex: Female

DRUGS (4)
  1. ZYPREXA [Suspect]
     Dosage: 5 mg, bid
     Dates: start: 20110825, end: 20110830
  2. EFFEXOR LP [Concomitant]
     Dosage: 75 mg, bid
     Dates: start: 201108, end: 20110830
  3. IMOVANE [Concomitant]
     Dosage: 7.5 mg, qd
     Dates: start: 201108, end: 20110830
  4. HALDOL [Concomitant]
     Dosage: 2 UNK, UNK
     Dates: start: 201108, end: 20110830

REACTIONS (4)
  - Laryngospasm [Recovered/Resolved with Sequelae]
  - Vocal cord paralysis [Recovering/Resolving]
  - Extrapyramidal disorder [Not Recovered/Not Resolved]
  - Fall [Recovered/Resolved with Sequelae]
